FAERS Safety Report 5633830-9 (Version None)
Quarter: 2008Q1

REPORT INFORMATION
  Report Type: 
  Country: None (occurrence: None)
  Receive Date: 20080131
  Receipt Date: 20070427
  Transmission Date: 20080703
  Serious: Yes (Other)
  Sender: FDA-Public Use
  Company Number: 153702USA

PATIENT
  Age: 51 Year
  Sex: Male
  Weight: 84.8226 kg

DRUGS (2)
  1. COPAXONE [Suspect]
     Indication: RELAPSING-REMITTING MULTIPLE SCLEROSIS
     Dosage: (20 MG),SUBCUTANEOUS
     Route: 058
     Dates: start: 20060201, end: 20070213
  2. FISH OIL [Concomitant]

REACTIONS (12)
  - ANGIOEDEMA [None]
  - DYSPHAGIA [None]
  - ERYTHEMA [None]
  - FACE OEDEMA [None]
  - HYPERSENSITIVITY [None]
  - LIP OEDEMA [None]
  - LOCALISED OEDEMA [None]
  - OEDEMA PERIPHERAL [None]
  - PHARYNGEAL OEDEMA [None]
  - RASH MACULAR [None]
  - THROAT TIGHTNESS [None]
  - URTICARIA [None]
